FAERS Safety Report 23278156 (Version 1)
Quarter: 2023Q4

REPORT INFORMATION
  Report Type: Report from Study
  Country: US (occurrence: US)
  Receive Date: 20231208
  Receipt Date: 20231208
  Transmission Date: 20240109
  Serious: Yes (Other)
  Sender: FDA-Public Use
  Company Number: US-ARGENX-2023-ARGX-US002946

PATIENT

DRUGS (4)
  1. VYVGART [Suspect]
     Active Substance: EFGARTIGIMOD ALFA-FCAB
     Indication: Myasthenia gravis
     Dosage: 10 MG/KG
     Route: 042
     Dates: start: 202308, end: 2023
  2. VYVGART [Suspect]
     Active Substance: EFGARTIGIMOD ALFA-FCAB
     Dosage: UNK
     Route: 058
  3. VYVGART [Suspect]
     Active Substance: EFGARTIGIMOD ALFA-FCAB
     Dosage: UNK
     Route: 042
  4. PREDNISONE [Concomitant]
     Active Substance: PREDNISONE
     Indication: Product used for unknown indication
     Dosage: UNK

REACTIONS (19)
  - Supraventricular tachycardia [Unknown]
  - Muscle twitching [Recovered/Resolved]
  - Poor venous access [Unknown]
  - Diplopia [Unknown]
  - Eyelid ptosis [Unknown]
  - Muscular weakness [Unknown]
  - Fatigue [Unknown]
  - Procedural headache [Recovered/Resolved]
  - Peripheral swelling [Unknown]
  - Swelling [Unknown]
  - Micturition urgency [Unknown]
  - Pollakiuria [Unknown]
  - Urinary incontinence [Unknown]
  - Myasthenia gravis [Unknown]
  - Diarrhoea [Unknown]
  - Cough [Unknown]
  - Muscular weakness [Unknown]
  - Nausea [Unknown]
  - Nasopharyngitis [Unknown]
